FAERS Safety Report 15619094 (Version 1)
Quarter: 2018Q4

REPORT INFORMATION
  Report Type: Spontaneous
  Country: KR (occurrence: KR)
  Receive Date: 20181114
  Receipt Date: 20181114
  Transmission Date: 20190205
  Serious: Yes (Hospitalization)
  Sender: FDA-Public Use
  Company Number: KR-SA-2018SA307142

PATIENT
  Age: 62 Year
  Sex: Male
  Weight: 87 kg

DRUGS (14)
  1. CLEXANE [Suspect]
     Active Substance: ENOXAPARIN SODIUM
     Dosage: 85~87.5MG, BID
     Route: 058
     Dates: start: 20180904, end: 20180904
  2. CLEXANE [Suspect]
     Active Substance: ENOXAPARIN SODIUM
     Dosage: 85~87.5MG/BID
     Route: 058
     Dates: start: 20180907, end: 20180907
  3. CLEXANE [Suspect]
     Active Substance: ENOXAPARIN SODIUM
     Dosage: 85 MG, UNK
     Route: 058
     Dates: start: 20180908, end: 20180908
  4. TORSEM [Concomitant]
     Dosage: 2.5/5 MG
     Route: 065
     Dates: start: 20180814, end: 20181017
  5. CLEXANE [Suspect]
     Active Substance: ENOXAPARIN SODIUM
     Indication: ATRIAL FIBRILLATION
     Dosage: 87.5 MG, UNK
     Route: 058
     Dates: start: 20180903, end: 20180903
  6. CLEXANE [Suspect]
     Active Substance: ENOXAPARIN SODIUM
     Dosage: 85~87.5MG, BID
     Route: 058
     Dates: start: 20180905, end: 20180905
  7. K-CONTIN [Concomitant]
     Indication: HYPOKALAEMIA
     Dosage: 600 MG, QD
     Route: 048
     Dates: start: 20181020, end: 20181020
  8. DIGOSIN [Concomitant]
     Active Substance: DIGOXIN
     Dosage: 0.25/0.125 MG/QD
     Route: 065
  9. ALDACTONE [Concomitant]
     Active Substance: SPIRONOLACTONE
     Dosage: 25/12.5 MG
     Route: 065
  10. DILATREND [Concomitant]
     Active Substance: CARVEDILOL
     Dosage: 3.125 MG, BID
     Route: 065
     Dates: start: 20180731, end: 20180903
  11. CLEXANE [Suspect]
     Active Substance: ENOXAPARIN SODIUM
     Dosage: 85~87.5MG/BID
     Route: 058
     Dates: start: 20180906, end: 20180906
  12. WARFARIN [Concomitant]
     Active Substance: WARFARIN
     Indication: ATRIAL FIBRILLATION
     Dosage: 1~5MG, QD
     Route: 048
     Dates: start: 20180903
  13. CONCOR [Concomitant]
     Active Substance: BISOPROLOL FUMARATE
     Indication: CARDIAC FAILURE
     Dosage: 1.25MG/QD
     Route: 048
     Dates: start: 20180910
  14. FLUDEX-SR [Concomitant]
     Active Substance: INDAPAMIDE
     Indication: CARDIAC FAILURE
     Dosage: 1.5MG, QD
     Route: 048
     Dates: start: 20180918

REACTIONS (2)
  - Dyspnoea [Recovered/Resolved]
  - Off label use [Unknown]

NARRATIVE: CASE EVENT DATE: 20181017
